FAERS Safety Report 19226230 (Version 2)
Quarter: 2023Q1

REPORT INFORMATION
  Report Type: Other
  Country: US (occurrence: None)
  Receive Date: 20210505
  Receipt Date: 20230320
  Transmission Date: 20230417
  Serious: Yes (Other)
  Sender: FDA-Public Use
  Company Number: US-ROCHE-2742357

PATIENT
  Age: 55 Year
  Sex: Female

DRUGS (3)
  1. BEVACIZUMAB [Suspect]
     Active Substance: BEVACIZUMAB
     Indication: Adenosquamous carcinoma of the cervix
     Route: 065
  2. PACLITAXEL [Concomitant]
     Active Substance: PACLITAXEL
  3. CISPLATIN [Concomitant]
     Active Substance: CISPLATIN

REACTIONS (1)
  - Laryngeal necrosis [Recovering/Resolving]
